FAERS Safety Report 7511748-4 (Version None)
Quarter: 2011Q2

REPORT INFORMATION
  Report Type: 
  Country: None (occurrence: None)
  Receive Date: 20110531
  Receipt Date: 20110517
  Transmission Date: 20111010
  Serious: Yes (Hospitalization)
  Sender: FDA-Public Use
  Company Number: IE-ELI_LILLY_AND_COMPANY-IE201105004713

PATIENT
  Sex: Female

DRUGS (11)
  1. FORTEO [Suspect]
     Indication: OSTEOPOROSIS
     Dosage: 20 UG, UNKNOWN
     Route: 065
     Dates: start: 20110414
  2. FUROSEMIDE [Concomitant]
     Dosage: UNK, UNKNOWN
     Route: 065
  3. HYDROXYCHLOROQUINE SULFATE [Concomitant]
     Dosage: UNK, UNKNOWN
     Route: 065
  4. PREDNISOLONE [Concomitant]
     Dosage: UNK, UNKNOWN
     Route: 065
  5. LYRICA [Concomitant]
     Dosage: UNK, UNKNOWN
     Route: 065
  6. OXYCONTIN [Concomitant]
     Dosage: UNK, UNKNOWN
     Route: 065
  7. PANTOPRAZOLE [Concomitant]
     Dosage: UNK, UNKNOWN
     Route: 065
  8. CELLCEPT [Concomitant]
     Dosage: UNK, UNKNOWN
     Route: 065
  9. LEVOTHYROXINE SODIUM [Concomitant]
     Dosage: UNK, UNKNOWN
     Route: 065
  10. WARFARIN SODIUM [Concomitant]
     Dosage: UNK, UNKNOWN
     Route: 065
  11. ABILIFY [Concomitant]
     Dosage: UNK, UNKNOWN
     Route: 065

REACTIONS (2)
  - CELLULITIS [None]
  - HOSPITALISATION [None]
